FAERS Safety Report 5893169-3 (Version None)
Quarter: 2008Q3

REPORT INFORMATION
  Report Type: 
  Country: None (occurrence: None)
  Receive Date: 20080923
  Receipt Date: 20070907
  Transmission Date: 20090109
  Serious: No
  Sender: FDA-Public Use
  Company Number: US-ASTRAZENECA-2007UW21209

PATIENT
  Age: 39 Year
  Sex: Male
  Weight: 78 kg

DRUGS (4)
  1. SEROQUEL [Suspect]
     Indication: BIPOLAR DISORDER
     Route: 048
     Dates: start: 20030101
  2. ZYPREXA [Concomitant]
     Route: 048
  3. PROZAC [Concomitant]
  4. DEPAKOTE [Concomitant]

REACTIONS (6)
  - DIZZINESS POSTURAL [None]
  - HYPERHIDROSIS [None]
  - MOOD SWINGS [None]
  - SKIN ULCER [None]
  - VISUAL IMPAIRMENT [None]
  - WEIGHT DECREASED [None]
